FAERS Safety Report 6232122-7 (Version None)
Quarter: 2009Q2

REPORT INFORMATION
  Report Type: 
  Country: None (occurrence: None)
  Receive Date: 20090617
  Receipt Date: 20090609
  Transmission Date: 20091009
  Serious: Yes (Other)
  Sender: FDA-Public Use
  Company Number: US-SP-2009-02477

PATIENT
  Age: 84 Year
  Sex: Male

DRUGS (2)
  1. THERACYS [Suspect]
     Indication: BLADDER CANCER
     Route: 065
  2. THERACYS [Suspect]
     Route: 065

REACTIONS (2)
  - PYREXIA [None]
  - URINARY TRACT INFECTION [None]
